FAERS Safety Report 6862326-1 (Version None)
Quarter: 2010Q3

REPORT INFORMATION
  Report Type: 
  Country: None (occurrence: None)
  Receive Date: 20100721
  Receipt Date: 20100709
  Transmission Date: 20110219
  Serious: Yes (Hospitalization)
  Sender: FDA-Public Use
  Company Number: PHHY2010MX45271

PATIENT
  Sex: Female

DRUGS (2)
  1. DIOVAN [Suspect]
     Indication: HYPERTENSION
     Dosage: 1 TABLET (160 MG ) PER DAY
     Dates: start: 20070701
  2. ARAVA [Concomitant]

REACTIONS (2)
  - HYSTERECTOMY [None]
  - OOPHORECTOMY [None]
